FAERS Safety Report 7004053-6 (Version None)
Quarter: 2010Q3

REPORT INFORMATION
  Report Type: 
  Country: None (occurrence: None)
  Receive Date: 20100920
  Receipt Date: 20100108
  Transmission Date: 20110219
  Serious: No
  Sender: FDA-Public Use
  Company Number: US-WYE-H13080110

PATIENT
  Sex: Female

DRUGS (5)
  1. PRISTIQ [Suspect]
     Indication: DEPRESSION
     Dosage: CUT TABLET IN HALF
     Route: 048
     Dates: start: 20091201, end: 20091201
  2. TYLENOL W/ CODEINE NO. 3 [Concomitant]
  3. ALPRAZOLAM [Concomitant]
  4. LYRICA [Concomitant]
  5. METHOCARBAMOL [Concomitant]

REACTIONS (7)
  - DRUG WITHDRAWAL SYNDROME [None]
  - FEELING ABNORMAL [None]
  - IRRITABILITY [None]
  - MUSCLE TIGHTNESS [None]
  - PARAESTHESIA [None]
  - TENSION [None]
  - WRONG TECHNIQUE IN DRUG USAGE PROCESS [None]
